FAERS Safety Report 16592191 (Version 1)
Quarter: 2019Q3

REPORT INFORMATION
  Report Type: Spontaneous
  Country: FR (occurrence: FR)
  Receive Date: 20190718
  Receipt Date: 20190718
  Transmission Date: 20191004
  Serious: Yes (Hospitalization)
  Sender: FDA-Public Use
  Company Number: FR-TEVA-2019-FR-1078234

PATIENT
  Age: 67 Year
  Sex: Male

DRUGS (1)
  1. AMOXICILLINE BASE [Suspect]
     Active Substance: AMOXICILLIN
     Indication: TONSILLITIS
     Dosage: NP
     Route: 048
     Dates: start: 2014, end: 2014

REACTIONS (1)
  - Type IV hypersensitivity reaction [Recovered/Resolved]

NARRATIVE: CASE EVENT DATE: 2014
